FAERS Safety Report 10264872 (Version 1)
Quarter: 2014Q2

REPORT INFORMATION
  Report Type: Spontaneous
  Country: GB (occurrence: GB)
  Receive Date: 20140627
  Receipt Date: 20140627
  Transmission Date: 20141212
  Serious: Yes (Other)
  Sender: FDA-Public Use
  Company Number: GB-GALDERMA-GB14002290

PATIENT
  Age: 69 Year
  Sex: Female

DRUGS (1)
  1. PLIAGLIS [Suspect]
     Indication: LOCAL ANAESTHESIA
     Dosage: 7%-7%
     Route: 061
     Dates: start: 20140316, end: 20140316

REACTIONS (4)
  - Blister [Recovered/Resolved]
  - Swelling face [Recovered/Resolved]
  - Erythema [Recovered/Resolved]
  - Pruritus [Recovered/Resolved]
